FAERS Safety Report 8272735-4 (Version None)
Quarter: 2012Q2

REPORT INFORMATION
  Report Type: 
  Country: None (occurrence: None)
  Receive Date: 20120411
  Receipt Date: 20120329
  Transmission Date: 20120825
  Serious: Yes (Hospitalization)
  Sender: FDA-Public Use
  Company Number: FR-BAXTER-2012BAX001437

PATIENT
  Sex: Female
  Weight: 52 kg

DRUGS (6)
  1. CRESTOR [Concomitant]
     Route: 065
  2. EPIRUBICIN [Suspect]
     Route: 042
     Dates: start: 20120227
  3. FLUOROURACIL [Suspect]
     Route: 042
     Dates: start: 20120227
  4. XANAX [Concomitant]
     Route: 065
     Dates: start: 20120201
  5. CYCLOPHOSPHAMIDE [Suspect]
     Route: 042
     Dates: start: 20120227
  6. IMOVANE [Concomitant]
     Route: 065
     Dates: start: 20120313

REACTIONS (1)
  - FEBRILE BONE MARROW APLASIA [None]
